FAERS Safety Report 10664182 (Version 1)
Quarter: 2014Q4

REPORT INFORMATION
  Report Type: Spontaneous
  Country: US (occurrence: US)
  Receive Date: 20141219
  Receipt Date: 20141219
  Transmission Date: 20150529
  Serious: Yes (Hospitalization)
  Sender: FDA-Public Use
  Company Number: US-JNJFOC-20141206384

PATIENT
  Age: 84 Year
  Sex: Male
  Weight: 63.5 kg

DRUGS (2)
  1. XARELTO [Suspect]
     Active Substance: RIVAROXABAN
     Indication: CEREBROVASCULAR ACCIDENT PROPHYLAXIS
     Route: 048
     Dates: end: 201409
  2. XARELTO [Suspect]
     Active Substance: RIVAROXABAN
     Indication: ATRIAL FIBRILLATION
     Route: 048
     Dates: end: 201409

REACTIONS (8)
  - Hypotension [Recovered/Resolved]
  - Contusion [Unknown]
  - Blood urine present [Unknown]
  - Post procedural haemorrhage [Recovered/Resolved]
  - Kidney infection [Recovered/Resolved]
  - Asthenia [Unknown]
  - Skin haemorrhage [Recovered/Resolved]
  - Hypokinesia [Unknown]

NARRATIVE: CASE EVENT DATE: 201407
